FAERS Safety Report 14017908 (Version 1)
Quarter: 2017Q3

REPORT INFORMATION
  Report Type: Spontaneous
  Country: US (occurrence: US)
  Receive Date: 20170928
  Receipt Date: 20170928
  Transmission Date: 20171128
  Serious: Yes (Hospitalization)
  Sender: FDA-Public Use
  Company Number: US-BEH-2017083817

PATIENT
  Sex: Female
  Weight: 58.96 kg

DRUGS (19)
  1. HIZENTRA [Suspect]
     Active Substance: HUMAN IMMUNOGLOBULIN G
     Indication: IMMUNODEFICIENCY COMMON VARIABLE
     Dosage: 8 G, UNK
     Route: 058
     Dates: start: 20170608
  2. TRAMADOL. [Concomitant]
     Active Substance: TRAMADOL
  3. VITAMIN B [Concomitant]
     Active Substance: VITAMIN B
  4. EPOGEN [Concomitant]
     Active Substance: ERYTHROPOIETIN
  5. ASPIRIN. [Concomitant]
     Active Substance: ASPIRIN
  6. LEVOTHYROXINE. [Concomitant]
     Active Substance: LEVOTHYROXINE
  7. BYSTOLIC [Concomitant]
     Active Substance: NEBIVOLOL HYDROCHLORIDE
  8. VITAMIN D3 [Concomitant]
     Active Substance: CHOLECALCIFEROL
  9. CALCIUM+D3 [Concomitant]
  10. RESTORIL [Concomitant]
     Active Substance: TEMAZEPAM
  11. PANTOPRAZOLE [Concomitant]
     Active Substance: PANTOPRAZOLE
  12. HIZENTRA [Suspect]
     Active Substance: HUMAN IMMUNOGLOBULIN G
     Dosage: UNK
     Route: 058
  13. FISH OIL [Concomitant]
     Active Substance: FISH OIL
  14. ESTRADIOL. [Concomitant]
     Active Substance: ESTRADIOL
  15. RENVELA [Concomitant]
     Active Substance: SEVELAMER CARBONATE
  16. PREDNISONE. [Concomitant]
     Active Substance: PREDNISONE
  17. SODIUM BICARBONATE. [Concomitant]
     Active Substance: SODIUM BICARBONATE
  18. VITAMIN B12 [Concomitant]
     Active Substance: CYANOCOBALAMIN
  19. TYLENOL EXTRA STRENGTH [Concomitant]
     Active Substance: ACETAMINOPHEN

REACTIONS (1)
  - Peritonitis [Unknown]
